FAERS Safety Report 19453251 (Version 2)
Quarter: 2021Q2

REPORT INFORMATION
  Report Type: Report from Study
  Country: US (occurrence: US)
  Receive Date: 20210623
  Receipt Date: 20210628
  Transmission Date: 20210717
  Serious: Yes (Other)
  Sender: FDA-Public Use
  Company Number: NVSC2021US132442

PATIENT
  Sex: Male

DRUGS (2)
  1. ENTRESTO [Suspect]
     Active Substance: SACUBITRIL\VALSARTAN
     Indication: PRODUCT USED FOR UNKNOWN INDICATION
     Dosage: UNK, QD (DOSE: 24/26 MG, 1 TABLET IN THE MORNING)
     Route: 048
  2. ENTRESTO [Suspect]
     Active Substance: SACUBITRIL\VALSARTAN
     Dosage: UNK, QD (DOSE: 49/51MG, 1 TABLET IN THE EVENING)
     Route: 048

REACTIONS (5)
  - Incorrect dose administered [Unknown]
  - Cough [Unknown]
  - Ejection fraction decreased [Unknown]
  - Productive cough [Unknown]
  - Cardiac failure chronic [Unknown]
